FAERS Safety Report 18607064 (Version 1)
Quarter: 2020Q4

REPORT INFORMATION
  Report Type: Spontaneous
  Country: JP (occurrence: JP)
  Receive Date: 20201211
  Receipt Date: 20201211
  Transmission Date: 20210114
  Serious: Yes (Other)
  Sender: FDA-Public Use
  Company Number: JP-GUERBET-JP-20200203

PATIENT
  Age: 53 Year
  Sex: Male

DRUGS (2)
  1. N-BUTYL-CYANOACRYLATE [Concomitant]
     Indication: THERAPEUTIC EMBOLISATION
     Route: 013
  2. LIPIODOL [Suspect]
     Active Substance: ETHIODIZED OIL
     Indication: THERAPEUTIC EMBOLISATION
     Route: 013

REACTIONS (5)
  - Peritonitis [Unknown]
  - Haemoglobin decreased [Recovering/Resolving]
  - Pyrexia [Recovered/Resolved]
  - Product use in unapproved indication [Unknown]
  - Systemic inflammatory response syndrome [Recovering/Resolving]
